FAERS Safety Report 8649796 (Version 3)
Quarter: 2012Q4

REPORT INFORMATION
  Report Type: 
  Country: US (occurrence: US)
  Receive Date: 20120705
  Receipt Date: 20121018
  Transmission Date: 20130627
  Serious: Yes (Death, Other)
  Sender: FDA-Public Use
  Company Number: PHEH2012US013155

PATIENT
  Age: 78 None
  Sex: Male
  Weight: 88.44 kg

DRUGS (4)
  1. ZOMETA [Suspect]
     Indication: METASTASES TO BONE
     Dosage: 3 mg, QMO
     Route: 042
     Dates: start: 20100127, end: 20120515
  2. LUPRON [Concomitant]
     Route: 030
  3. CASODEX [Concomitant]
     Route: 048
  4. TAXOTERE [Concomitant]
     Route: 042

REACTIONS (2)
  - Prostate cancer metastatic [Fatal]
  - General physical health deterioration [Unknown]
